FAERS Safety Report 22285931 (Version 1)
Quarter: 2023Q2

REPORT INFORMATION
  Report Type: Spontaneous
  Country: HR (occurrence: HR)
  Receive Date: 20230505
  Receipt Date: 20230505
  Transmission Date: 20230721
  Serious: Yes (Death, Hospitalization, Other)
  Sender: FDA-Public Use
  Company Number: HR-KRKA-HR2022K09162LIT

PATIENT
  Age: 60 Year
  Sex: Female

DRUGS (3)
  1. XARELTO [Suspect]
     Active Substance: RIVAROXABAN
     Indication: Aortic thrombosis
     Dosage: 15 MG, 2X PER DAY
     Route: 048
  2. AMOXICILLIN\CLAVULANIC ACID [Suspect]
     Active Substance: AMOXICILLIN\CLAVULANIC ACID
     Indication: COVID-19
     Dosage: UNK
     Route: 048
  3. CEFUROXIME [Concomitant]
     Active Substance: CEFUROXIME
     Indication: Product used for unknown indication

REACTIONS (7)
  - Coma hepatic [Fatal]
  - Drug-induced liver injury [Fatal]
  - Respiratory failure [Fatal]
  - Hepatic encephalopathy [Fatal]
  - Generalised tonic-clonic seizure [Fatal]
  - Brain oedema [Fatal]
  - Off label use [Unknown]
